FAERS Safety Report 25705246 (Version 1)
Quarter: 2025Q3

REPORT INFORMATION
  Report Type: Spontaneous
  Country: US (occurrence: None)
  Receive Date: 20250819
  Receipt Date: 20250819
  Transmission Date: 20251021
  Serious: Yes (Life-Threatening, Hospitalization)
  Sender: FDA-CTU
  Company Number: None

PATIENT
  Age: 82 Year
  Sex: Female

DRUGS (4)
  1. CLOPIDOGREL [Suspect]
     Active Substance: CLOPIDOGREL BISULFATE
  2. ASPIRIN [Suspect]
     Active Substance: ASPIRIN
  3. CLOPIDOGREL [Concomitant]
     Active Substance: CLOPIDOGREL BISULFATE
  4. ASPIRIN [Concomitant]
     Active Substance: ASPIRIN

REACTIONS (6)
  - Cerebrovascular accident [None]
  - Thalamus haemorrhage [None]
  - Basal ganglia haemorrhage [None]
  - Eating disorder [None]
  - Speech disorder [None]
  - Movement disorder [None]

NARRATIVE: CASE EVENT DATE: 20241004
